FAERS Safety Report 6493811-2 (Version None)
Quarter: 2009Q4

REPORT INFORMATION
  Report Type: 
  Country: None (occurrence: None)
  Receive Date: 20091214
  Receipt Date: 20090603
  Transmission Date: 20100525
  Serious: No
  Sender: FDA-Public Use
  Company Number: US-BRISTOL-MYERS SQUIBB COMPANY-14396659

PATIENT
  Age: 20 Year
  Sex: Female
  Weight: 123 kg

DRUGS (4)
  1. ABILIFY [Suspect]
     Indication: BIPOLAR DISORDER
     Dosage: 20MG:1996 RESTRATED NOV08:5MG INTERPT:1ST TRI RESTART:2ND TRI:5MG/D TAKEN 10MG,20MG
     Dates: start: 20081105
  2. ABILIFY [Suspect]
     Indication: PSYCHOTIC DISORDER
     Dosage: 20MG:1996 RESTRATED NOV08:5MG INTERPT:1ST TRI RESTART:2ND TRI:5MG/D TAKEN 10MG,20MG
     Dates: start: 20081105
  3. MULTI-VITAMINS [Concomitant]
  4. BENADRYL [Concomitant]

REACTIONS (2)
  - PREGNANCY [None]
  - PREMATURE LABOUR [None]
